FAERS Safety Report 18534599 (Version 1)
Quarter: 2020Q4

REPORT INFORMATION
  Report Type: Spontaneous
  Country: MX (occurrence: MX)
  Receive Date: 20201123
  Receipt Date: 20201123
  Transmission Date: 20210114
  Serious: No
  Sender: FDA-Public Use
  Company Number: MX-LUPIN PHARMACEUTICALS INC.-2020-05097

PATIENT
  Age: 48 Year
  Sex: Male

DRUGS (4)
  1. SULFAMETHOXAZOLE AND TRIMETHOPRIM [Suspect]
     Active Substance: SULFAMETHOXAZOLE\TRIMETHOPRIM
     Indication: ACTINOMYCOSIS
     Dosage: UNK UNK, BID
     Route: 065
  2. STREPTOMYCIN [Suspect]
     Active Substance: STREPTOMYCIN SULFATE
     Indication: ACTINOMYCOSIS
     Dosage: 3 GRAM WEEKLY (1G ON THE THIRD DAY)
     Route: 030
  3. CIPROFLOXACIN. [Suspect]
     Active Substance: CIPROFLOXACIN
     Indication: ACTINOMYCOSIS
     Dosage: 500 MILLIGRAM, BID
     Route: 065
  4. STREPTOMYCIN [Suspect]
     Active Substance: STREPTOMYCIN SULFATE
     Dosage: UPTO MAX 50 G
     Route: 030

REACTIONS (2)
  - Nausea [Unknown]
  - Diarrhoea [Unknown]
